FAERS Safety Report 6065680-6 (Version None)
Quarter: 2009Q1

REPORT INFORMATION
  Report Type: 
  Country: None (occurrence: None)
  Receive Date: 20090130
  Receipt Date: 20090114
  Transmission Date: 20090719
  Serious: Yes (Death)
  Sender: FDA-Public Use
  Company Number: 8033841

PATIENT
  Sex: Female

DRUGS (2)
  1. KEPPRA [Suspect]
  2. VARIOUS ANTIEPILEPTIC DRUGS [Concomitant]

REACTIONS (1)
  - DEATH [None]
